FAERS Safety Report 16551253 (Version 1)
Quarter: 2019Q3

REPORT INFORMATION
  Report Type: Report from Study
  Country: FR (occurrence: FR)
  Receive Date: 20190710
  Receipt Date: 20190710
  Transmission Date: 20191004
  Serious: Yes (Other)
  Sender: FDA-Public Use
  Company Number: FR-AUROBINDO-AUR-APL-2019-036095

PATIENT

DRUGS (4)
  1. CEFTRIAXONE POWDER FOR SOLUTION FOR INJECTION [Suspect]
     Active Substance: CEFTRIAXONE SODIUM
     Indication: ESCHERICHIA INFECTION
  2. CEFTRIAXONE POWDER FOR SOLUTION FOR INJECTION [Suspect]
     Active Substance: CEFTRIAXONE SODIUM
     Indication: DEVICE RELATED INFECTION
  3. ERTAPENEM POWDER FOR CONCENTRATE FOR SOLUTION FOR INFUSION [Suspect]
     Active Substance: ERTAPENEM
     Indication: ANTIBIOTIC THERAPY
     Dosage: 1 GRAM, ONCE A DAY
     Route: 058
  4. CEFTRIAXONE POWDER FOR SOLUTION FOR INJECTION [Suspect]
     Active Substance: CEFTRIAXONE SODIUM
     Indication: ANTIBIOTIC THERAPY
     Dosage: 1 GRAM, ONCE A DAY
     Route: 058

REACTIONS (5)
  - Hepatitis cholestatic [Unknown]
  - Eosinophilia [Unknown]
  - Therapeutic product ineffective [Unknown]
  - Treatment failure [Unknown]
  - Off label use [Unknown]
